FAERS Safety Report 14677156 (Version 1)
Quarter: 2018Q1

REPORT INFORMATION
  Report Type: Spontaneous
  Country: US (occurrence: US)
  Receive Date: 20180323
  Receipt Date: 20180323
  Transmission Date: 20180509
  Serious: Yes (Hospitalization)
  Sender: FDA-Public Use
  Company Number: None

PATIENT
  Sex: Female

DRUGS (7)
  1. ZOHYDRO, CYMBALTA [Concomitant]
  2. VITAMIN C, TRAZODONE [Concomitant]
  3. PRILOSEC OTC [Concomitant]
     Active Substance: OMEPRAZOLE MAGNESIUM
  4. ORENCIA [Suspect]
     Active Substance: ABATACEPT
     Indication: RHEUMATOID ARTHRITIS
     Dosage: ?          OTHER FREQUENCY:Q 4 WEEKS;?
     Route: 042
     Dates: start: 20120606
  5. XANAX, WELLBUTRIN [Concomitant]
  6. TOPAMAX, MULTI-VITAMIN [Concomitant]
  7. ROBAXIN, PLAQUENIL [Concomitant]

REACTIONS (1)
  - Hospitalisation [None]
